FAERS Safety Report 6928167-1 (Version None)
Quarter: 2010Q3

REPORT INFORMATION
  Report Type: 
  Country: None (occurrence: None)
  Receive Date: 20100817
  Receipt Date: 20100806
  Transmission Date: 20110219
  Serious: Yes (Hospitalization)
  Sender: FDA-Public Use
  Company Number: CA-JNJFOC-20100803149

PATIENT
  Sex: Female
  Weight: 105 kg

DRUGS (7)
  1. REMICADE [Suspect]
     Indication: RHEUMATOID ARTHRITIS
     Route: 042
  2. REMICADE [Suspect]
     Route: 042
  3. ARAVA [Concomitant]
  4. SULFASALAZINE [Concomitant]
  5. CELEBREX [Concomitant]
  6. EPIVAL [Concomitant]
  7. BIRTH CONTROL PILL [Concomitant]

REACTIONS (2)
  - DIARRHOEA [None]
  - VOMITING [None]
